FAERS Safety Report 7918494-3 (Version None)
Quarter: 2011Q4

REPORT INFORMATION
  Report Type: 
  Country: None (occurrence: None)
  Receive Date: 20111116
  Receipt Date: 20111101
  Transmission Date: 20120403
  Serious: No
  Sender: FDA-Public Use
  Company Number: US-COVIDIEN/TYCO HEALTHCARE/MALLINCKRODT-T201102575

PATIENT
  Sex: Male

DRUGS (7)
  1. FENTANYL [Concomitant]
     Dosage: 50 UG/HR, Q 3 DAYS
     Dates: start: 20080101, end: 20111001
  2. PERCOCET [Concomitant]
     Indication: BREAKTHROUGH PAIN
     Dosage: 7.5/325, 2 TABLETS DAILY
  3. LIPITOR [Concomitant]
     Indication: BLOOD CHOLESTEROL INCREASED
     Dosage: 1 TABLET, Q HS
  4. XANAX [Concomitant]
     Indication: INSOMNIA
     Dosage: 1 MG, Q HS
  5. CYMBALTA [Concomitant]
     Indication: DEPRESSION
     Dosage: 60 MG, QD
  6. AMLODIPINE [Concomitant]
     Indication: HYPERTENSION
     Dosage: 1 TABLET, QD
  7. FENTANYL-100 [Suspect]
     Indication: PAIN
     Dosage: 50 UG/HR, Q 3 DAYS
     Route: 062
     Dates: start: 20111001

REACTIONS (5)
  - INAPPROPRIATE SCHEDULE OF DRUG ADMINISTRATION [None]
  - APPLICATION SITE ERYTHEMA [None]
  - APPLICATION SITE EXFOLIATION [None]
  - APPLICATION SITE VESICLES [None]
  - APPLICATION SITE PRURITUS [None]
